FAERS Safety Report 4668315-X (Version None)
Quarter: 2005Q2

REPORT INFORMATION
  Report Type: 
  Country: None (occurrence: None)
  Receive Date: 20050523
  Receipt Date: 20050321
  Transmission Date: 20051028
  Serious: Yes (Other)
  Sender: FDA-Public Use
  Company Number: PHEH2005US03431

PATIENT
  Age: 50 Year
  Sex: Female
  Weight: 113 kg

DRUGS (2)
  1. ZOMETA [Suspect]
     Indication: METASTASES TO BONE
     Dosage: 4 MG, QMO
     Dates: start: 20030101, end: 20040101
  2. CHEMOTHERAPEUTICS,OTHER [Concomitant]

REACTIONS (1)
  - ASEPTIC NECROSIS BONE [None]
